FAERS Safety Report 8822533 (Version 1)
Quarter: 2012Q4

REPORT INFORMATION
  Report Type: 
  Country: VE (occurrence: VE)
  Receive Date: 20121003
  Receipt Date: 20121003
  Transmission Date: 20130627
  Serious: Yes (Death)
  Sender: FDA-Public Use
  Company Number: VE-PFIZER INC-2012243640

PATIENT
  Age: 95 Year
  Sex: Male

DRUGS (3)
  1. LIPITOR [Suspect]
     Dosage: UNK, once daily
     Route: 048
  2. NORVASC [Concomitant]
     Dosage: UNK, twice daily
     Route: 048
  3. ZOLOFT [Concomitant]
     Dosage: UNK, once daily
     Route: 048
     Dates: start: 201001

REACTIONS (1)
  - Death [Fatal]
